FAERS Safety Report 4743861-9 (Version None)
Quarter: 2005Q3

REPORT INFORMATION
  Report Type: 
  Country: None (occurrence: None)
  Receive Date: 20050812
  Receipt Date: 20050119
  Transmission Date: 20060218
  Serious: Yes (Other)
  Sender: FDA-Public Use
  Company Number: AU-MERCK-0502AUS00140

PATIENT
  Age: 67 Year
  Sex: Female

DRUGS (4)
  1. VIOXX [Suspect]
     Route: 048
     Dates: start: 20030501, end: 20041001
  2. FLUTICASONE PROPIONATE AND SALMETEROL XINAFOATE [Concomitant]
     Indication: ASTHMA
     Route: 065
  3. FOSINOPRIL SODIUM [Concomitant]
     Route: 065
  4. [THERAPY UNSPECIFIED] [Concomitant]
     Route: 055

REACTIONS (3)
  - CEREBROVASCULAR ACCIDENT [None]
  - GENERAL SYMPTOM [None]
  - MYOCARDIAL INFARCTION [None]
